FAERS Safety Report 13085452 (Version 10)
Quarter: 2019Q4

REPORT INFORMATION
  Report Type: Spontaneous
  Country: US (occurrence: US)
  Receive Date: 20170104
  Receipt Date: 20191230
  Transmission Date: 20200122
  Serious: Yes (Death)
  Sender: FDA-Public Use
  Company Number: US-PFIZER INC-2015269766

PATIENT
  Age: 83 Year
  Sex: Female
  Weight: 55 kg

DRUGS (22)
  1. LANOXIN [Concomitant]
     Active Substance: DIGOXIN
     Dosage: 0.25 MG, 1X/DAY (Q AM)
  2. TIKOSYN [Concomitant]
     Active Substance: DOFETILIDE
     Dosage: 125 UG, 2X/DAY
     Dates: start: 20141015
  3. PANTOPRAZOLE SODIUM. [Concomitant]
     Active Substance: PANTOPRAZOLE SODIUM
     Dosage: 40 MG, 1X/DAY (30 MINUTES AS A MEAL)
     Route: 048
  4. MIRALAX [Concomitant]
     Active Substance: POLYETHYLENE GLYCOL 3350
     Indication: CONSTIPATION
     Dosage: UNK, DAILY (17GM PO IN 8 OZ , ONE CAPFUL DAILY IN WATER)
     Route: 048
     Dates: start: 20150625
  5. MIRALAX [Concomitant]
     Active Substance: POLYETHYLENE GLYCOL 3350
     Dosage: 17 MG, DAILY
  6. COUMADIN [Concomitant]
     Active Substance: WARFARIN SODIUM
     Indication: ATRIAL FIBRILLATION
     Dosage: 4 MG, DAILY
  7. ATIVAN [Concomitant]
     Active Substance: LORAZEPAM
     Dosage: 0.5 MG, 1X/DAY (Q HS)
  8. ATENOLOL. [Concomitant]
     Active Substance: ATENOLOL
     Indication: HYPERTENSION
     Dosage: 25 MG, 1X/DAY
  9. PROTONIX [Suspect]
     Active Substance: PANTOPRAZOLE SODIUM
     Indication: BARRETT^S OESOPHAGUS
     Dosage: 40 MG, 2X/DAY (30 MINUTES AC MEALS)
     Route: 048
     Dates: start: 20121001
  10. TYLENOL WITH CODEINE [Concomitant]
     Active Substance: ACETAMINOPHEN\CODEINE PHOSPHATE
     Indication: INSOMNIA
     Dosage: 3 DF, 1X/DAY (EVERY NIGHT)
  11. ANUSOL-HC [Concomitant]
     Active Substance: HYDROCORTISONE
     Indication: HAEMORRHAGE
     Dosage: 25 MG, 2X/DAY (FOR 14 DAYS)
     Route: 054
     Dates: start: 20130808
  12. FAMOTIDINE. [Concomitant]
     Active Substance: FAMOTIDINE
     Dosage: 20 MG, 2X/DAY (TAKEN AT LUNCHTIME AND AT BEDTIME)
     Route: 048
     Dates: start: 20131030
  13. WARFARIN [Concomitant]
     Active Substance: WARFARIN
     Indication: ATRIAL FIBRILLATION
     Dosage: 4 MG, 1X/DAY
  14. WARFARIN [Concomitant]
     Active Substance: WARFARIN
     Indication: THROMBOSIS
  15. TENORMIN [Concomitant]
     Active Substance: ATENOLOL
     Dosage: 25 MG, 1X/DAY ( Q AM)
     Dates: start: 20141015
  16. DEXILANT [Concomitant]
     Active Substance: DEXLANSOPRAZOLE
     Dosage: 60 MG, 1X/DAY, (QD 30 MINUTES AC MEALS)
     Route: 048
     Dates: start: 20160222
  17. PROTONIX [Suspect]
     Active Substance: PANTOPRAZOLE SODIUM
     Indication: GASTROOESOPHAGEAL REFLUX DISEASE
     Dosage: 40 MG, 2X/DAY (MINUTES A/C A MEAL/ 30 MIN BEFORE BREAKFAST AND DINNER BRAND ONLY [BMN, 30 TO 60 MIN)
     Route: 048
     Dates: start: 2009
  18. PROTONIX [Suspect]
     Active Substance: PANTOPRAZOLE SODIUM
     Dosage: 40 MG, 2X/DAY
     Route: 048
     Dates: start: 2016
  19. CARDIZEM CD [Concomitant]
     Active Substance: DILTIAZEM HYDROCHLORIDE
     Dosage: 240 MG, 1X/DAY (Q AM)
  20. LUCENTIS [Concomitant]
     Active Substance: RANIBIZUMAB
     Dosage: UNK, MONTHLY (1 INJ)
     Dates: start: 20130429
  21. MIRALAX [Concomitant]
     Active Substance: POLYETHYLENE GLYCOL 3350
     Dosage: 1 DF, 1X/DAY
  22. TIKOSYN [Concomitant]
     Active Substance: DOFETILIDE
     Dosage: 125 UG, 2X/DAY
     Route: 048

REACTIONS (4)
  - Diarrhoea [Recovered/Resolved]
  - Death [Fatal]
  - Haemorrhoidal haemorrhage [Unknown]
  - Prescribed overdose [Unknown]
